FAERS Safety Report 17878856 (Version 1)
Quarter: 2020Q2

REPORT INFORMATION
  Report Type: Spontaneous
  Country: CZ (occurrence: CZ)
  Receive Date: 20200610
  Receipt Date: 20200610
  Transmission Date: 20200714
  Serious: Yes (Death, Other)
  Sender: FDA-Public Use
  Company Number: CZ-TEVA-2020-CZ-1245243

PATIENT
  Age: 45 Year
  Sex: Female

DRUGS (6)
  1. PEMETREXED. [Suspect]
     Active Substance: PEMETREXED
     Indication: LUNG ADENOCARCINOMA
     Dosage: (SECOND LINE TREATMENT)
     Route: 065
     Dates: start: 20181010
  2. PACLITAXEL. [Suspect]
     Active Substance: PACLITAXEL
     Indication: LUNG ADENOCARCINOMA
     Dosage: (FIRST CYCLE OF A COMBINATION CHEMOTHERAPY)
     Route: 065
     Dates: start: 20180911
  3. CARBOPLATIN. [Suspect]
     Active Substance: CARBOPLATIN
     Indication: LUNG ADENOCARCINOMA
     Dosage: AREA UNDER THE CURVE 5 (AUC5) (FIRST CYCLE OF A COMBINATION CHEMOTHERAPY)
     Route: 065
     Dates: start: 20180911
  4. CRIZOTINIB [Suspect]
     Active Substance: CRIZOTINIB
     Indication: LUNG ADENOCARCINOMA
     Dosage: 1000 MILLIGRAM DAILY;
     Route: 065
     Dates: start: 20181031
  5. BEVACIZUMAB. [Suspect]
     Active Substance: BEVACIZUMAB
     Indication: LUNG ADENOCARCINOMA
     Dosage: (FIRST CYCLE OF A COMBINATION CHEMOTHERAPY)
     Route: 065
     Dates: start: 20180911
  6. NINTEDANIB [Suspect]
     Active Substance: NINTEDANIB
     Indication: LUNG ADENOCARCINOMA
     Dosage: 400 MILLIGRAM DAILY; MONOTHERAPY
     Route: 065
     Dates: start: 20181220

REACTIONS (2)
  - Drug resistance [Fatal]
  - Drug ineffective [Fatal]
